FAERS Safety Report 4937297-5 (Version None)
Quarter: 2006Q1

REPORT INFORMATION
  Report Type: 
  Country: None (occurrence: None)
  Receive Date: 20060302
  Receipt Date: 20060222
  Transmission Date: 20060701
  Serious: Yes (Disabling)
  Sender: FDA-Public Use
  Company Number: 2006002313

PATIENT
  Age: 68 Year
  Sex: Female

DRUGS (9)
  1. ATARAX [Suspect]
     Indication: PREMEDICATION
     Dosage: 25 MG (25 MG, 1 IN 1 D), ORAL
     Route: 048
     Dates: start: 20051107, end: 20051107
  2. MEPIVACAINE HCL [Suspect]
     Indication: LOCAL ANAESTHESIA
     Dosage: 10 ML (10 ML, 1 IN 1 D),
     Dates: start: 20051107, end: 20051107
  3. CIPROFLOXACIN [Suspect]
     Indication: PREMEDICATION
     Dosage: (1 IN 1 D), OPHTHALMIC
     Route: 047
     Dates: start: 20051107, end: 20051107
  4. TROPICAMIDE [Suspect]
     Indication: PREMEDICATION
     Dosage: (1 IN 1 D), OPHTHALMIC
     Route: 047
     Dates: start: 20051107, end: 20051107
  5. AOSIA (CALCIUM CHLORIDE DIHYDRATE, MAGNESIUM CHLORIDE ANHYDROUS, POTAS [Suspect]
     Indication: EYE IRRIGATION
     Dosage: 500 ML, OPHTHALMIC
     Route: 047
     Dates: start: 20051107, end: 20051107
  6. VANCOMYCIN [Suspect]
     Indication: EYE IRRIGATION
     Dosage: 125 MG, OPHTHALMIC
     Route: 047
     Dates: start: 20051107, end: 20051107
  7. KETOROLAC THROMETHAMINE (KETOROLAC THROMETHAMINE) [Concomitant]
  8. PHENYLEPHRINE HYDROCHLORIDE (PHENYLEPHRINE HYDROCHLORIDE) [Concomitant]
  9. DIAMOX [Concomitant]

REACTIONS (3)
  - CORNEAL EXFOLIATION [None]
  - CORNEAL OEDEMA [None]
  - CORNEAL OPACITY [None]
